FAERS Safety Report 5423047-5 (Version None)
Quarter: 2007Q3

REPORT INFORMATION
  Report Type: 
  Country: None (occurrence: None)
  Receive Date: 20070822
  Receipt Date: 20070810
  Transmission Date: 20080115
  Serious: Yes (Other)
  Sender: FDA-Public Use
  Company Number: DE-PFIZER INC-2007068293

PATIENT
  Age: 55 Year
  Sex: Female

DRUGS (1)
  1. LYRICA [Suspect]
     Indication: INTERVERTEBRAL DISC PROTRUSION

REACTIONS (5)
  - APHASIA [None]
  - ARTHRALGIA [None]
  - COORDINATION ABNORMAL [None]
  - DYSSTASIA [None]
  - VISUAL DISTURBANCE [None]
